FAERS Safety Report 10086070 (Version 1)
Quarter: 2014Q2

REPORT INFORMATION
  Report Type: Spontaneous
  Country: DE (occurrence: DE)
  Receive Date: 20140418
  Receipt Date: 20140418
  Transmission Date: 20141212
  Serious: Yes (Congenital Anomaly, Other)
  Sender: FDA-Public Use
  Company Number: DE-DRREDDYS-GER/GER/14/0039778

PATIENT
  Age: 0 Year
  Sex: 0

DRUGS (5)
  1. CITALOPRAM [Suspect]
     Indication: PRODUCT USED FOR UNKNOWN INDICATION
     Route: 064
     Dates: start: 20110829
  2. CITALOPRAM [Suspect]
     Route: 064
     Dates: end: 20120430
  3. IMPFSTOFF GRIPPE (SAISONALE) [Suspect]
     Indication: PRODUCT USED FOR UNKNOWN INDICATION
     Route: 064
     Dates: start: 20111227, end: 20111227
  4. LEVOTHYROXINE SODIUM [Concomitant]
     Indication: PRODUCT USED FOR UNKNOWN INDICATION
     Route: 064
     Dates: start: 20110829, end: 20120610
  5. FOLSAEURE [Concomitant]
     Indication: PRODUCT USED FOR UNKNOWN INDICATION
     Dosage: AND PRECONCEPTIONAL
     Route: 064

REACTIONS (2)
  - Deafness congenital [Unknown]
  - Foetal exposure during pregnancy [Unknown]
